FAERS Safety Report 6759388-9 (Version None)
Quarter: 2010Q2

REPORT INFORMATION
  Report Type: 
  Country: None (occurrence: None)
  Receive Date: 20100528
  Receipt Date: 20100512
  Transmission Date: 20101027
  Serious: Yes (Other)
  Sender: FDA-Public Use
  Company Number: 2010SCPR000692

PATIENT
  Age: 51 Year
  Sex: Female

DRUGS (11)
  1. VALPROIC ACID [Suspect]
     Indication: CONVULSION PROPHYLAXIS
     Dosage: 250 MG AM AND 500 MG PM
  2. ALPRAZOLAM [Suspect]
     Indication: DRUG USE FOR UNKNOWN INDICATION
     Dosage: 8 MG, QD,  2 MG, TID
  3. HEROIN (DIAMORPHINE) UNKNOWN [Suspect]
     Indication: DRUG USE FOR UNKNOWN INDICATION
     Dosage: 50 G THREE TIMES IN A WEEK
  4. HYDROCODONE BITARTRATE + ACETAMINOPHEN [Concomitant]
  5. METHYLPHENIDATE HCL [Concomitant]
  6. FLUOXETINE [Concomitant]
  7. BUPROPION (BUPROPION) SLOW RELEASE TABLET [Concomitant]
  8. LEVOTHYROXINE SODIUM [Concomitant]
  9. ATENOLOL [Concomitant]
  10. BUPRENORPHINE W/NALOXONE (BUPRENORPHINE, NALOXONE) [Concomitant]
  11. LORAZEPAM [Concomitant]

REACTIONS (3)
  - DIZZINESS [None]
  - HALLUCINATIONS, MIXED [None]
  - HYPERAMMONAEMIC ENCEPHALOPATHY [None]
